FAERS Safety Report 24854305 (Version 1)
Quarter: 2025Q1

REPORT INFORMATION
  Report Type: Spontaneous
  Country: US (occurrence: US)
  Receive Date: 20250117
  Receipt Date: 20250117
  Transmission Date: 20250409
  Serious: No
  Sender: TAKEDA
  Company Number: US-TAKEDA-2025TUS003063

PATIENT
  Sex: Female
  Weight: 79 kg

DRUGS (3)
  1. MOTEGRITY [Suspect]
     Active Substance: PRUCALOPRIDE SUCCINATE
     Indication: Gastrointestinal hypomotility
     Dosage: 2 MILLIGRAM, QD
  2. LINZESS [Concomitant]
     Active Substance: LINACLOTIDE
     Indication: Gastrointestinal hypomotility
  3. IBSRELA [Concomitant]
     Active Substance: TENAPANOR HYDROCHLORIDE
     Indication: Gastrointestinal hypomotility

REACTIONS (5)
  - Product use issue [Recovered/Resolved]
  - Product dose omission issue [Unknown]
  - Weight decreased [Unknown]
  - Haemorrhoids [Unknown]
  - Gastrointestinal disorder [Unknown]
